FAERS Safety Report 9059415 (Version 2)
Quarter: 2013Q1

REPORT INFORMATION
  Report Type: Report from Study
  Country: HU (occurrence: HU)
  Receive Date: 20130211
  Receipt Date: 20130301
  Transmission Date: 20140127
  Serious: Yes (Other)
  Sender: FDA-Public Use
  Company Number: HU-GLAXOSMITHKLINE-B0866489A

PATIENT
  Age: 77 None
  Sex: Female

DRUGS (10)
  1. SERETIDE DISKUS [Suspect]
     Indication: ASTHMA
     Route: 055
     Dates: start: 201202, end: 20130220
  2. MONTELUKAST [Concomitant]
     Dosage: 10MG PER DAY
     Dates: start: 201202
  3. ASPIRIN PROTECT [Concomitant]
     Dosage: 100MG PER DAY
     Dates: end: 20130220
  4. CALCIUM [Concomitant]
     Dosage: 500MG PER DAY
     Dates: start: 2011
  5. DOMPERIDON [Concomitant]
     Dosage: 10MG THREE TIMES PER DAY
     Dates: start: 201111
  6. AMILORID [Concomitant]
  7. FUROSEMID [Concomitant]
     Dosage: 40MG PER DAY
     Dates: start: 20130124
  8. COVEREX [Concomitant]
     Dosage: 60MG PER DAY
  9. BERODUAL [Concomitant]
     Dates: start: 2010
  10. PANTOPRAZOL [Concomitant]

REACTIONS (6)
  - Pulmonary oedema [Recovering/Resolving]
  - Oral fungal infection [Recovered/Resolved]
  - Dysphonia [Recovered/Resolved]
  - Dyspnoea [Recovering/Resolving]
  - Cough [Recovered/Resolved]
  - Thrombosis [Not Recovered/Not Resolved]
